FAERS Safety Report 4599680-X (Version None)
Quarter: 2005Q1

REPORT INFORMATION
  Report Type: 
  Country: None (occurrence: None)
  Receive Date: 20050304
  Receipt Date: 20050304
  Transmission Date: 20050727
  Serious: Yes (Life-Threatening)
  Sender: FDA-Public Use
  Company Number: None

PATIENT
  Age: 42 Year
  Sex: Male
  Weight: 86.1834 kg

DRUGS (2)
  1. FENTANYL [Suspect]
     Indication: INTERVERTEBRAL DISC DEGENERATION
     Dosage: 1 PATCH 72/HRS TRANSDERMA
     Route: 062
     Dates: start: 20050225, end: 20050325
  2. FENTANYL [Suspect]
     Indication: NERVOUS SYSTEM DISORDER
     Dosage: 1 PATCH 72/HRS TRANSDERMA
     Route: 062
     Dates: start: 20050225, end: 20050325

REACTIONS (5)
  - CHILLS [None]
  - CONVULSION [None]
  - DRUG WITHDRAWAL SYNDROME [None]
  - PHARMACEUTICAL PRODUCT COMPLAINT [None]
  - VOMITING [None]
